FAERS Safety Report 7091476-2 (Version None)
Quarter: 2010Q4

REPORT INFORMATION
  Report Type: 
  Country: None (occurrence: None)
  Receive Date: 20101105
  Receipt Date: 20101105
  Transmission Date: 20110411
  Serious: Yes (Other)
  Sender: FDA-Public Use
  Company Number: None

PATIENT
  Age: 42 Year
  Sex: Female
  Weight: 88.4514 kg

DRUGS (6)
  1. FANAPT [Suspect]
     Indication: BIPOLAR DISORDER
     Dosage: 6MG BID PO
     Route: 048
     Dates: start: 20101022, end: 20101027
  2. XANAX [Concomitant]
  3. ADDERALL 10 [Concomitant]
  4. ZOLOFT [Concomitant]
  5. LOVAZA [Concomitant]
  6. TOPAMAX [Concomitant]

REACTIONS (2)
  - NASAL OEDEMA [None]
  - OEDEMA PERIPHERAL [None]
